FAERS Safety Report 6756783-9 (Version None)
Quarter: 2010Q2

REPORT INFORMATION
  Report Type: 
  Country: None (occurrence: None)
  Receive Date: 20100604
  Receipt Date: 20100528
  Transmission Date: 20101027
  Serious: Yes (Hospitalization)
  Sender: FDA-Public Use
  Company Number: US-JNJFOC-20100510839

PATIENT
  Age: 53 Year
  Sex: Male

DRUGS (13)
  1. DROPERIDOL [Suspect]
     Indication: PROPHYLAXIS OF NAUSEA AND VOMITING
     Route: 042
  2. FENTANYL [Suspect]
     Indication: DRUG USE FOR UNKNOWN INDICATION
     Route: 065
  3. ONDANSETRON [Suspect]
     Indication: PROPHYLAXIS OF NAUSEA AND VOMITING
     Route: 065
  4. EPHEDRINE [Suspect]
     Indication: DRUG USE FOR UNKNOWN INDICATION
     Route: 065
  5. KETOROLAC TROMETHAMINE [Suspect]
     Indication: DRUG USE FOR UNKNOWN INDICATION
     Route: 065
  6. VECURONIUM BROMIDE [Suspect]
     Indication: DRUG USE FOR UNKNOWN INDICATION
     Route: 065
  7. LIDOCAINE [Suspect]
     Indication: DRUG USE FOR UNKNOWN INDICATION
     Route: 065
  8. PROPOFOL [Suspect]
     Indication: DRUG USE FOR UNKNOWN INDICATION
     Route: 065
  9. DOLASETRON [Suspect]
     Indication: PROPHYLAXIS OF NAUSEA AND VOMITING
     Route: 065
  10. SEVOFLURANE [Suspect]
     Indication: DRUG USE FOR UNKNOWN INDICATION
     Route: 065
  11. NITROUS OXIDE [Suspect]
     Indication: DRUG USE FOR UNKNOWN INDICATION
     Route: 065
  12. NEOSTIGMINE [Suspect]
     Indication: DRUG USE FOR UNKNOWN INDICATION
     Route: 065
  13. GLYCOPYRROLATE [Suspect]
     Indication: DRUG USE FOR UNKNOWN INDICATION
     Route: 065

REACTIONS (3)
  - CONDUCTION DISORDER [None]
  - ELECTROCARDIOGRAM T WAVE AMPLITUDE DECREASED [None]
  - VENTRICULAR TACHYCARDIA [None]
